FAERS Safety Report 24093165 (Version 7)
Quarter: 2025Q3

REPORT INFORMATION
  Report Type: Spontaneous
  Country: US (occurrence: US)
  Receive Date: 20240715
  Receipt Date: 20250822
  Transmission Date: 20251021
  Serious: Yes (Other)
  Sender: KYOWA
  Company Number: US-KYOWAKIRIN-2024KK016623

PATIENT

DRUGS (13)
  1. NOURIANZ [Suspect]
     Active Substance: ISTRADEFYLLINE
     Indication: Parkinson^s disease
     Dosage: 20 MG, QD
     Route: 048
     Dates: start: 20240521
  2. NOURIANZ [Suspect]
     Active Substance: ISTRADEFYLLINE
     Indication: Osteoporosis
  3. NOURIANZ [Suspect]
     Active Substance: ISTRADEFYLLINE
     Indication: Parkinson^s disease
     Route: 065
  4. NOURIANZ [Suspect]
     Active Substance: ISTRADEFYLLINE
     Indication: Osteoporosis
     Dosage: 40 MG, QD
     Route: 048
     Dates: start: 20250606
  5. ATORVASTATIN [Concomitant]
     Active Substance: ATORVASTATIN
     Indication: Product used for unknown indication
     Route: 065
  6. CARBIDOPA AND LEVODOPA [Concomitant]
     Active Substance: CARBIDOPA\LEVODOPA
     Indication: Product used for unknown indication
     Route: 065
  7. DONEPEZIL [Concomitant]
     Active Substance: DONEPEZIL
     Indication: Product used for unknown indication
     Route: 065
  8. LEVOTHYROXINE [Concomitant]
     Active Substance: LEVOTHYROXINE
     Indication: Product used for unknown indication
     Route: 065
  9. VITAMINS NOS [Concomitant]
     Active Substance: VITAMINS
     Indication: Product used for unknown indication
     Route: 065
  10. PAXIL [Concomitant]
     Active Substance: PAROXETINE HYDROCHLORIDE
     Indication: Product used for unknown indication
     Route: 065
  11. ZYRTEC [Concomitant]
     Active Substance: CETIRIZINE HYDROCHLORIDE
     Indication: Product used for unknown indication
     Route: 065
  12. BOTOX [Concomitant]
     Active Substance: ONABOTULINUMTOXINA
     Indication: Product used for unknown indication
     Route: 065
  13. OXYBUTYNIN [Concomitant]
     Active Substance: OXYBUTYNIN
     Indication: Product used for unknown indication
     Route: 065

REACTIONS (5)
  - Hallucination [Unknown]
  - Condition aggravated [Not Recovered/Not Resolved]
  - Sleep disorder [Unknown]
  - Impulse-control disorder [Unknown]
  - Constipation [Unknown]
